FAERS Safety Report 8254761-4 (Version None)
Quarter: 2012Q2

REPORT INFORMATION
  Report Type: 
  Country: None (occurrence: None)
  Receive Date: 20120403
  Receipt Date: 20120326
  Transmission Date: 20120825
  Serious: Yes (Other)
  Sender: FDA-Public Use
  Company Number: PHHY2012BR026983

PATIENT
  Sex: Male

DRUGS (7)
  1. RISPERIDONE [Concomitant]
     Dosage: 1 MG, UNK
  2. EXELON [Suspect]
     Indication: DEMENTIA ALZHEIMER'S TYPE
     Dosage: 2 DF DAILY
     Route: 048
  3. EXELON [Suspect]
     Dosage: 4.5 MG, 2 CAPSULES A DAY
     Route: 048
     Dates: start: 20120324
  4. ASPIRIN [Concomitant]
     Dosage: 100 MG, UNK
  5. EXELON [Suspect]
     Dosage: 3 MG, 2 CAPSULES DAILY
     Route: 048
  6. EXELON [Suspect]
     Dosage: 4.5 MG, 2 CAPSULES A DAY
     Route: 048
  7. EXELON [Suspect]
     Indication: DEMENTIA ALZHEIMER'S TYPE
     Dosage: 27MG/15CM2 (PATCH 13.3MG) , ONE PATCH A DAY
     Route: 062
     Dates: start: 20120213

REACTIONS (6)
  - AGITATION [None]
  - SPEECH DISORDER [None]
  - INSOMNIA [None]
  - FEELING ABNORMAL [None]
  - HALLUCINATION [None]
  - HALLUCINATION, VISUAL [None]
